FAERS Safety Report 7702344-4 (Version None)
Quarter: 2011Q3

REPORT INFORMATION
  Report Type: 
  Country: None (occurrence: None)
  Receive Date: 20110822
  Receipt Date: 20110811
  Transmission Date: 20111222
  Serious: Yes (Other)
  Sender: FDA-Public Use
  Company Number: PHHY2011US73617

PATIENT
  Age: 61 Year
  Sex: Female

DRUGS (6)
  1. AMANTADINE HCL [Suspect]
  2. QUETIAPINE [Suspect]
  3. VALPROIC ACID [Suspect]
  4. METIROSINE [Suspect]
  5. BACLOFEN [Suspect]
  6. LEVETIRACETAM [Suspect]

REACTIONS (2)
  - DRUG INEFFECTIVE [None]
  - DRUG INTOLERANCE [None]
